FAERS Safety Report 11940778 (Version 1)
Quarter: 2016Q1

REPORT INFORMATION
  Report Type: Spontaneous
  Country: DE (occurrence: DE)
  Receive Date: 20160122
  Receipt Date: 20160122
  Transmission Date: 20160526
  Serious: Yes (Other)
  Sender: FDA-Public Use
  Company Number: PHHY2016DE004327

PATIENT
  Sex: Female

DRUGS (2)
  1. TYVERB [Suspect]
     Active Substance: LAPATINIB
     Indication: PRODUCT USED FOR UNKNOWN INDICATION
     Dosage: 1500 MG, QD
     Route: 065
     Dates: start: 201409
  2. LETROZOL ABZ [Suspect]
     Active Substance: LETROZOLE
     Indication: PRODUCT USED FOR UNKNOWN INDICATION
     Dosage: 2.5 MG, UNK
     Route: 065

REACTIONS (8)
  - Nausea [Unknown]
  - Pneumonia [Unknown]
  - Arthropathy [Unknown]
  - Insomnia [Unknown]
  - Headache [Unknown]
  - Dermatitis [Unknown]
  - Bronchitis [Unknown]
  - Diarrhoea [Recovering/Resolving]
